FAERS Safety Report 7782085-8 (Version None)
Quarter: 2011Q3

REPORT INFORMATION
  Report Type: 
  Country: None (occurrence: None)
  Receive Date: 20110927
  Receipt Date: 20110914
  Transmission Date: 20111222
  Serious: Yes (Other)
  Sender: FDA-Public Use
  Company Number: US-ELI_LILLY_AND_COMPANY-US201109004594

PATIENT
  Sex: Female

DRUGS (4)
  1. LIPITOR [Concomitant]
     Dosage: 10 MG, QD
  2. FORTEO [Suspect]
     Indication: OSTEOPOROSIS
     Dosage: 20 UG, QD
     Route: 065
     Dates: start: 20110301
  3. HYDROCHLOROTHIAZIDE [Concomitant]
     Dosage: 50 MG, QD
  4. PRILOSEC [Concomitant]
     Dosage: 20 MG, QD

REACTIONS (2)
  - CARDIOMEGALY [None]
  - PNEUMONIA [None]
